FAERS Safety Report 22045444 (Version 1)
Quarter: 2023Q1

REPORT INFORMATION
  Report Type: Spontaneous
  Country: US (occurrence: None)
  Receive Date: 20230227
  Receipt Date: 20230227
  Transmission Date: 20230418
  Serious: Yes (Hospitalization)
  Sender: FDA-Public Use
  Company Number: None

PATIENT
  Sex: Female

DRUGS (8)
  1. NORDITROPIN [Suspect]
     Active Substance: SOMATROPIN
     Indication: Hypopituitarism
     Dosage: OTHER QUANTITY : 10 MG/1.5ML;?FREQUENCY : DAILY;?
     Route: 058
     Dates: start: 20220421
  2. FERROUS SULF TAB EC [Concomitant]
  3. K CITRATE SOL CITR ACD [Concomitant]
  4. LORATADINE SOL [Concomitant]
  5. MONTELUKAST CHW [Concomitant]
  6. POLYETH GLYC POW [Concomitant]
  7. SENOKOT S TAB [Concomitant]
  8. VITAMIN D DRO [Concomitant]

REACTIONS (1)
  - Respiratory disorder [None]
